FAERS Safety Report 6572172-4 (Version None)
Quarter: 2010Q1

REPORT INFORMATION
  Report Type: 
  Country: None (occurrence: None)
  Receive Date: 20100205
  Receipt Date: 20100128
  Transmission Date: 20100710
  Serious: Yes (Death)
  Sender: FDA-Public Use
  Company Number: B0629533A

PATIENT
  Sex: Female
  Weight: 1 kg

DRUGS (3)
  1. LAMICTAL [Suspect]
     Indication: EPILEPSY
     Dosage: 200MG PER DAY
     Dates: start: 20090501, end: 20091110
  2. PREVISCAN [Suspect]
     Indication: ATRIAL FLUTTER
     Dosage: 10MG PER DAY
     Dates: start: 20090501, end: 20091110
  3. SECTRAL [Suspect]
     Indication: ATRIAL FLUTTER
     Dosage: 400MG PER DAY
     Dates: start: 20090501, end: 20091110

REACTIONS (3)
  - DEATH [None]
  - DRUG EXPOSURE DURING PREGNANCY [None]
  - PREMATURE BABY [None]
